FAERS Safety Report 24141279 (Version 1)
Quarter: 2024Q3

REPORT INFORMATION
  Report Type: Spontaneous
  Country: US (occurrence: None)
  Receive Date: 20240725
  Receipt Date: 20240725
  Transmission Date: 20241017
  Serious: Yes (Hospitalization, Disabling)
  Sender: Public
  Company Number: None

PATIENT
  Sex: Male
  Weight: 63 kg

DRUGS (13)
  1. SINGULAIR [Suspect]
     Active Substance: MONTELUKAST SODIUM
     Indication: Asthma
     Dosage: FREQUENCY : AT BEDTIME;?
     Route: 048
  2. Eyeglasses [Concomitant]
  3. Emgality [Concomitant]
  4. Nurtec [Concomitant]
  5. ADDERALL [Concomitant]
     Active Substance: AMPHETAMINE ASPARTATE\AMPHETAMINE SULFATE\DEXTROAMPHETAMINE SACCHARATE\DEXTROAMPHETAMINE SULFATE
  6. HYDROXIZINE [Concomitant]
  7. PAM [Concomitant]
  8. LACOSAMIDE [Concomitant]
  9. BACLOFEN [Concomitant]
  10. Venlaflexine [Concomitant]
  11. RIZATRIPTAN [Concomitant]
  12. MAGNESIUM [Concomitant]
  13. VITAMIN D [Concomitant]
     Active Substance: VITAMIN D NOS

REACTIONS (20)
  - Attention deficit hyperactivity disorder [None]
  - Anxiety [None]
  - Obsessive-compulsive disorder [None]
  - Bronchitis [None]
  - Muscular weakness [None]
  - Gait inability [None]
  - Hallucination, visual [None]
  - Hallucination, auditory [None]
  - Dysarthria [None]
  - Mental impairment [None]
  - Memory impairment [None]
  - Thinking abnormal [None]
  - Intelligence test abnormal [None]
  - Muscle spasms [None]
  - Head discomfort [None]
  - Fatigue [None]
  - Fall [None]
  - Generalised tonic-clonic seizure [None]
  - Epilepsy [None]
  - Migraine [None]
